FAERS Safety Report 4407877-4 (Version None)
Quarter: 2004Q3

REPORT INFORMATION
  Report Type: 
  Country: None (occurrence: None)
  Receive Date: 20040721
  Receipt Date: 20040709
  Transmission Date: 20050211
  Serious: Yes (Hospitalization, Other)
  Sender: FDA-Public Use
  Company Number: 2004046521

PATIENT
  Age: 65 Year
  Sex: Male

DRUGS (6)
  1. NEURONTIN [Suspect]
     Indication: AFFECTIVE DISORDER
     Dosage: 1900 MG, ORAL
     Route: 048
  2. ZOLPIDEM TARTRATE [Concomitant]
  3. METFORMIN HCL [Concomitant]
  4. ATORVASTATIN (ATORVASTATIN) [Concomitant]
  5. QUINAPRIL HCL [Concomitant]
  6. PAROXETINE HCL [Concomitant]

REACTIONS (2)
  - PERICARDIAL EFFUSION [None]
  - PERICARDITIS [None]
